FAERS Safety Report 7223599-9 (Version None)
Quarter: 2011Q1

REPORT INFORMATION
  Report Type: 
  Country: None (occurrence: None)
  Receive Date: 20110112
  Receipt Date: 20100910
  Transmission Date: 20110831
  Serious: No
  Sender: FDA-Public Use
  Company Number: US-ALLERGAN-1011744US

PATIENT
  Age: 42 Year
  Sex: Male

DRUGS (1)
  1. RESTASIS [Suspect]
     Indication: POSTOPERATIVE CARE
     Dosage: 1 GTT, BID
     Route: 047

REACTIONS (1)
  - VISUAL IMPAIRMENT [None]
